FAERS Safety Report 8921036 (Version 1)
Quarter: 2012Q4

REPORT INFORMATION
  Report Type: 
  Country: CA (occurrence: CA)
  Receive Date: 20121121
  Receipt Date: 20121121
  Transmission Date: 20130627
  Serious: Yes (Hospitalization)
  Sender: FDA-Public Use
  Company Number: CA-B.I. PHARMACEUTICALS,INC./RIDGEFIELD-2012-CN-02196CN

PATIENT
  Age: 76 Year
  Sex: Female

DRUGS (3)
  1. PRADAX [Suspect]
     Indication: ATRIAL FIBRILLATION
     Dosage: 300 mg
     Route: 048
     Dates: start: 20120109, end: 20120724
  2. METOPROLOL [Concomitant]
     Dosage: 50 mg
     Route: 048
     Dates: start: 20120109
  3. ALTACE [Concomitant]
     Dosage: 2.5 mg
     Route: 048
     Dates: start: 20120123

REACTIONS (2)
  - Fall [Recovered/Resolved]
  - Subarachnoid haemorrhage [Recovered/Resolved]
